FAERS Safety Report 9670075 (Version 1)
Quarter: 2013Q4

REPORT INFORMATION
  Report Type: Spontaneous
  Country: US (occurrence: US)
  Receive Date: 20131105
  Receipt Date: 20131105
  Transmission Date: 20140711
  Serious: Yes (Other)
  Sender: FDA-Public Use
  Company Number: US-BAYER-2013-133118

PATIENT
  Age: 61 Year
  Sex: Female
  Weight: 94.33 kg

DRUGS (6)
  1. BETASERON [Suspect]
     Indication: RELAPSING-REMITTING MULTIPLE SCLEROSIS
     Dosage: 8 MIU, QOD
     Route: 058
     Dates: start: 20050214
  2. NEURONTIN [Concomitant]
     Dosage: 300 MG, UNK
     Route: 048
  3. CYMBALTA [Concomitant]
     Dosage: 30 MG, UNK
     Route: 048
  4. DICLOFENAC [Concomitant]
     Dosage: 75 MG,EC
     Route: 048
  5. TIZANIDINE [Concomitant]
     Dosage: 2 MG, UNK
     Route: 048
  6. VITAMIN D [Concomitant]
     Dosage: 400 U, UNK
     Route: 048

REACTIONS (6)
  - Injection site ulcer [Unknown]
  - Injection site erythema [Unknown]
  - Injection site discharge [Unknown]
  - Injection site pain [Unknown]
  - Injection site bruising [Unknown]
  - Injection site rash [Not Recovered/Not Resolved]
